FAERS Safety Report 10374775 (Version 1)
Quarter: 2014Q3

REPORT INFORMATION
  Report Type: Spontaneous
  Country: US (occurrence: US)
  Receive Date: 20140811
  Receipt Date: 20140811
  Transmission Date: 20150326
  Serious: No
  Sender: FDA-Public Use
  Company Number: US-BAYER-2014-112734

PATIENT
  Sex: Male

DRUGS (1)
  1. LEVITRA [Suspect]
     Active Substance: VARDENAFIL HYDROCHLORIDE TRIHYDRATE
     Route: 048

REACTIONS (8)
  - Headache [None]
  - Dyspepsia [None]
  - Sinusitis [None]
  - Nausea [None]
  - Rhinitis [None]
  - Flushing [None]
  - Influenza [None]
  - Dizziness [None]
